FAERS Safety Report 25795408 (Version 1)
Quarter: 2025Q3

REPORT INFORMATION
  Report Type: Spontaneous
  Country: US (occurrence: US)
  Receive Date: 20250912
  Receipt Date: 20250912
  Transmission Date: 20251020
  Serious: Yes (Other)
  Sender: SANOFI AVENTIS
  Company Number: US-DialogSolutions-SAAVPROD-PI820088-C1

PATIENT
  Age: 67 Year
  Sex: Male

DRUGS (4)
  1. LIXISENATIDE [Suspect]
     Active Substance: LIXISENATIDE
     Indication: Type 2 diabetes mellitus
  2. INSULIN DEGLUDEC [Concomitant]
     Active Substance: INSULIN DEGLUDEC
     Indication: Type 2 diabetes mellitus
  3. SEMAGLUTIDE [Concomitant]
     Active Substance: SEMAGLUTIDE
     Indication: Type 2 diabetes mellitus
  4. INSULIN GLARGINE [Concomitant]
     Active Substance: INSULIN GLARGINE
     Indication: Type 2 diabetes mellitus

REACTIONS (4)
  - Tubulointerstitial nephritis [Unknown]
  - Fatigue [Unknown]
  - Oedema peripheral [Unknown]
  - End stage renal disease [Unknown]
